FAERS Safety Report 13709933 (Version 1)
Quarter: 2017Q2

REPORT INFORMATION
  Report Type: Spontaneous
  Country: US (occurrence: US)
  Receive Date: 20170630
  Receipt Date: 20170630
  Transmission Date: 20170830
  Serious: Yes (Hospitalization)
  Sender: FDA-Public Use
  Company Number: None

PATIENT
  Sex: Male
  Weight: 76.4 kg

DRUGS (2)
  1. NEXAVAR [Suspect]
     Active Substance: SORAFENIB
     Dates: end: 20170529
  2. EVEROLIMUS (RAD-001) [Suspect]
     Active Substance: EVEROLIMUS
     Dates: end: 20170529

REACTIONS (1)
  - Constipation [None]

NARRATIVE: CASE EVENT DATE: 20170529
